FAERS Safety Report 7562384-5 (Version None)
Quarter: 2011Q2

REPORT INFORMATION
  Report Type: 
  Country: None (occurrence: None)
  Receive Date: 20110614
  Receipt Date: 20110601
  Transmission Date: 20111010
  Serious: Yes (Death, Other)
  Sender: FDA-Public Use
  Company Number: 2011MA006677

PATIENT
  Age: 48 Year
  Sex: Female

DRUGS (13)
  1. LORAZEPAM [Concomitant]
  2. FLUOXETINE HCL [Concomitant]
  3. PANTOPRAZOLE [Concomitant]
  4. SALSALATE [Concomitant]
  5. ACETAMINOPHEN [Concomitant]
  6. DULOXETIME HYDROCHLORIDE [Concomitant]
  7. GABAPENTIN [Suspect]
  8. FENTANYL [Concomitant]
  9. LISINOPRIL [Concomitant]
  10. THEOPHYLLINE [Concomitant]
  11. TEMAZEPAM [Concomitant]
  12. HYDROCODONE [Concomitant]
  13. MECLIZINE [Concomitant]

REACTIONS (5)
  - UNRESPONSIVE TO STIMULI [None]
  - DYSARTHRIA [None]
  - TOXICITY TO VARIOUS AGENTS [None]
  - PAIN IN EXTREMITY [None]
  - DIZZINESS [None]
